FAERS Safety Report 6603859-2 (Version None)
Quarter: 2010Q1

REPORT INFORMATION
  Report Type: 
  Country: None (occurrence: None)
  Receive Date: 20100226
  Receipt Date: 20090225
  Transmission Date: 20100710
  Serious: No
  Sender: FDA-Public Use
  Company Number: A0770447A

PATIENT
  Age: 26 Year
  Sex: Female

DRUGS (4)
  1. LAMICTAL CD [Suspect]
     Indication: BIPOLAR DISORDER
     Dosage: 400MG PER DAY
     Route: 048
  2. ORAL CONTRACEPTIVE [Concomitant]
  3. ZOLOFT [Concomitant]
  4. SEROQUEL [Concomitant]

REACTIONS (1)
  - HYPONATRAEMIA [None]
